FAERS Safety Report 18866889 (Version 1)
Quarter: 2021Q1

REPORT INFORMATION
  Report Type: Report from Study
  Country: US (occurrence: US)
  Receive Date: 20210209
  Receipt Date: 20210209
  Transmission Date: 20210420
  Serious: No
  Sender: FDA-Public Use
  Company Number: NVSC2021US021914

PATIENT
  Sex: Male

DRUGS (1)
  1. XIIDRA [Suspect]
     Active Substance: LIFITEGRAST
     Indication: PRODUCT USED FOR UNKNOWN INDICATION
     Dosage: UNK
     Route: 065

REACTIONS (6)
  - Dacryostenosis acquired [Unknown]
  - Ear disorder [Unknown]
  - Dysgeusia [Unknown]
  - Dry eye [Unknown]
  - Sinus disorder [Unknown]
  - Eye irritation [Unknown]
